FAERS Safety Report 4594797-8 (Version None)
Quarter: 2005Q1

REPORT INFORMATION
  Report Type: 
  Country: None (occurrence: None)
  Receive Date: 20050223
  Receipt Date: 20050209
  Transmission Date: 20050727
  Serious: Yes (Hospitalization)
  Sender: FDA-Public Use
  Company Number: GBR-2005-0001544

PATIENT
  Age: 58 Year
  Sex: Male

DRUGS (4)
  1. MORPHINE SULFATE [Suspect]
     Dosage: SEE IMAGE
     Dates: end: 20041110
  2. MORPHINE SULFATE [Suspect]
     Dosage: SEE IMAGE
     Dates: start: 20041210
  3. INTRON A [Suspect]
     Indication: RENAL CELL CARCINOMA STAGE UNSPECIFIED
     Dosage: SUBCUTANEOUS
     Route: 058
  4. PARACETAMOL [Concomitant]

REACTIONS (2)
  - DIZZINESS [None]
  - SINUSITIS [None]
